FAERS Safety Report 5175865-9 (Version None)
Quarter: 2006Q4

REPORT INFORMATION
  Report Type: 
  Country: None (occurrence: None)
  Receive Date: 20061215
  Receipt Date: 20061108
  Transmission Date: 20070319
  Serious: Yes (Hospitalization)
  Sender: FDA-Public Use
  Company Number: ES-ROCHE-470316

PATIENT
  Age: 66 Year
  Sex: Male
  Weight: 60 kg

DRUGS (13)
  1. DACLIZUMAB [Suspect]
     Route: 042
     Dates: start: 20060902
  2. MYCOPHENOLATE MOFETIL [Suspect]
     Route: 048
     Dates: start: 20060819
  3. TACROLIMUS [Suspect]
     Dosage: FREQUENCY REPORTED AS TWICE.
     Route: 048
     Dates: start: 20060825
  4. TACROLIMUS [Suspect]
     Dosage: DOSE REDUCED
     Route: 048
     Dates: start: 20060912
  5. TENORMIN [Concomitant]
     Dates: start: 20060825
  6. SEGURIL [Concomitant]
     Dates: start: 20060820, end: 20061123
  7. MASTICAL [Concomitant]
     Dates: start: 20060821, end: 20061110
  8. ROCALTROL [Concomitant]
     Dates: start: 20060825
  9. 1 CONCOMITANT DRUG [Concomitant]
     Dosage: DRUG NAME REPORTED AS NORUAS.
     Dates: start: 20060821
  10. 1 CONCOMITANT DRUG [Concomitant]
     Dosage: DRUG NAME REPORTED AS FERROGRADUMET.
     Dates: start: 20060821
  11. VALCYTE [Concomitant]
     Dates: start: 20060831, end: 20061123
  12. OMEPRAZOLE [Concomitant]
     Dates: start: 20060823
  13. 1 CONCOMITANT DRUG [Concomitant]
     Dosage: DRUG NAME REPORTED AS SEPTRIM.
     Dates: start: 20060831

REACTIONS (2)
  - ACINETOBACTER INFECTION [None]
  - URINARY TRACT INFECTION [None]
